FAERS Safety Report 4629432-3 (Version None)
Quarter: 2005Q2

REPORT INFORMATION
  Report Type: 
  Country: None (occurrence: None)
  Receive Date: 20050405
  Receipt Date: 20050321
  Transmission Date: 20051028
  Serious: Yes (Hospitalization)
  Sender: FDA-Public Use
  Company Number: TNZFR200300066

PATIENT
  Age: 71 Year
  Sex: Male
  Weight: 58 kg

DRUGS (2)
  1. INNOHEP [Suspect]
     Indication: ATRIAL FIBRILLATION
     Dosage: 8000 IU (8000 IU, ONCE
     Dates: start: 20030730, end: 20031104
  2. SOTALOL HCL [Concomitant]

REACTIONS (4)
  - ATRIAL FIBRILLATION [None]
  - ATRIAL FLUTTER [None]
  - HYPERKALAEMIA [None]
  - RENAL FAILURE [None]
